FAERS Safety Report 7418822-1 (Version None)
Quarter: 2011Q2

REPORT INFORMATION
  Report Type: 
  Country: None (occurrence: None)
  Receive Date: 20110415
  Receipt Date: 20110408
  Transmission Date: 20111010
  Serious: Yes (Hospitalization, Disabling)
  Sender: FDA-Public Use
  Company Number: JP-B.I. PHARMACEUTICALS,INC./RIDGEFIELD-2011-BP-02829NB

PATIENT
  Sex: Male

DRUGS (11)
  1. JUSO [Concomitant]
     Indication: DIZZINESS
     Dosage: 20 MG
     Route: 042
     Dates: start: 20100913, end: 20101214
  2. RIZE [Concomitant]
     Indication: DIZZINESS
     Dosage: 5 MG
     Route: 048
     Dates: start: 20100709
  3. METHYCOBAL [Concomitant]
     Indication: DIZZINESS
     Dosage: 1.5 MG
     Route: 048
     Dates: start: 20100611
  4. CLARITHROMYCIN [Concomitant]
     Indication: CHRONIC SINUSITIS
     Dosage: 200 MG
     Route: 048
     Dates: start: 20051015
  5. ADETPHOS [Concomitant]
     Indication: DIZZINESS
     Dosage: 40 MG
     Route: 042
     Dates: start: 20100913, end: 20101214
  6. ADETPHOS [Concomitant]
     Dosage: 180 MG
     Route: 048
     Dates: start: 20100910
  7. MICAMLO COMBINATION [Suspect]
     Indication: HYPERTENSION
     Dosage: 1DF
     Route: 048
     Dates: start: 20101208, end: 20101214
  8. MAINHEART [Concomitant]
     Indication: HYPERTENSION
     Dosage: 5 MG
     Route: 048
     Dates: start: 20100319, end: 20101214
  9. CEPHADOL [Concomitant]
     Indication: DIZZINESS
     Dosage: 75 MG
     Route: 048
     Dates: start: 20100430
  10. BOFU-TAUAHO-SAN [Concomitant]
     Indication: HYPERTENSION
     Dosage: 7.5 G
     Route: 048
     Dates: start: 20100528
  11. TRANSAMIN [Concomitant]
     Dosage: 750 MG
     Route: 048
     Dates: start: 20101208

REACTIONS (2)
  - CEREBRAL INFARCTION [None]
  - ATRIAL FIBRILLATION [None]
